FAERS Safety Report 25389115 (Version 1)
Quarter: 2025Q2

REPORT INFORMATION
  Report Type: Spontaneous
  Country: KR (occurrence: KR)
  Receive Date: 20250603
  Receipt Date: 20250603
  Transmission Date: 20250716
  Serious: Yes (Other)
  Sender: ALKEM
  Company Number: KR-ALKEM LABORATORIES LIMITED-KR-ALKEM-2024-21349

PATIENT
  Age: 77 Year
  Sex: Female

DRUGS (6)
  1. LOSARTAN [Suspect]
     Active Substance: LOSARTAN
     Indication: Blood pressure measurement
     Route: 065
  2. OLMESARTAN [Suspect]
     Active Substance: OLMESARTAN
     Indication: Blood pressure measurement
     Route: 065
  3. COUMARIN [Concomitant]
     Active Substance: COUMARIN
     Indication: Blood pressure measurement
     Route: 065
  4. FLUVASTATIN [Concomitant]
     Active Substance: FLUVASTATIN SODIUM
     Indication: Blood pressure measurement
     Route: 065
  5. IRBESARTAN [Concomitant]
     Active Substance: IRBESARTAN
     Indication: Blood pressure measurement
     Route: 065
  6. SARPOGRELATE [Concomitant]
     Active Substance: SARPOGRELATE
     Indication: Blood pressure measurement
     Route: 065

REACTIONS (2)
  - Angioedema [Recovered/Resolved]
  - Asthenia [Unknown]
